APPROVED DRUG PRODUCT: ESOMEPRAZOLE SODIUM
Active Ingredient: ESOMEPRAZOLE SODIUM
Strength: EQ 40MG BASE/VIAL
Dosage Form/Route: INJECTABLE;INTRAVENOUS
Application: A205379 | Product #001
Applicant: ACCORD HEALTHCARE INC
Approved: Sep 25, 2015 | RLD: No | RS: No | Type: DISCN